FAERS Safety Report 7860385-0 (Version None)
Quarter: 2011Q4

REPORT INFORMATION
  Report Type: 
  Country: None (occurrence: None)
  Receive Date: 20111027
  Receipt Date: 20111019
  Transmission Date: 20120403
  Serious: Yes (Other)
  Sender: FDA-Public Use
  Company Number: PHHY2011AU92847

PATIENT
  Sex: Female

DRUGS (1)
  1. ZOLEDRONOC ACID [Suspect]
     Indication: OSTEOPOROSIS
     Dosage: 5 MG, UNK
     Route: 042
     Dates: start: 20111019

REACTIONS (6)
  - HYPOAESTHESIA ORAL [None]
  - DRY SKIN [None]
  - CHEST DISCOMFORT [None]
  - PRURITUS [None]
  - ASTHMA [None]
  - FEELING HOT [None]
